FAERS Safety Report 7682794-5 (Version None)
Quarter: 2011Q3

REPORT INFORMATION
  Report Type: 
  Country: None (occurrence: None)
  Receive Date: 20110815
  Receipt Date: 20110808
  Transmission Date: 20111222
  Serious: Yes (Hospitalization)
  Sender: FDA-Public Use
  Company Number: JP-ROCHE-690242

PATIENT
  Sex: Male
  Weight: 87 kg

DRUGS (29)
  1. RABEPRAZOLE SODIUM [Concomitant]
     Route: 048
     Dates: start: 20060116
  2. DASEN [Concomitant]
     Route: 048
     Dates: start: 20100409, end: 20100416
  3. TOCILIZUMAB [Suspect]
     Route: 041
     Dates: start: 20090305, end: 20090305
  4. TOCILIZUMAB [Suspect]
     Route: 041
     Dates: start: 20090402, end: 20090402
  5. TOCILIZUMAB [Suspect]
     Route: 041
     Dates: start: 20090723, end: 20090723
  6. TOCILIZUMAB [Suspect]
     Route: 041
     Dates: start: 20100617, end: 20100617
  7. TOCILIZUMAB [Suspect]
     Route: 041
     Dates: start: 20100212, end: 20100515
  8. PREDNISOLONE [Concomitant]
     Route: 048
     Dates: start: 20070213
  9. SAXIZON [Concomitant]
     Dosage: FORM:INJECTION
     Route: 042
     Dates: start: 20090205, end: 20090205
  10. SAXIZON [Concomitant]
     Route: 042
     Dates: start: 20090305, end: 20090305
  11. ALLOPURINOL [Concomitant]
     Route: 048
     Dates: start: 20090216
  12. TOCILIZUMAB [Suspect]
     Route: 041
     Dates: start: 20091113, end: 20091113
  13. PROGRAF [Concomitant]
     Dosage: FORM: PERORAL AGENT.
     Route: 048
     Dates: start: 20090109
  14. PREDNISOLONE [Concomitant]
     Dosage: FORM: PERORAL AGENT.
     Route: 048
     Dates: start: 20081212
  15. TOCILIZUMAB [Suspect]
     Route: 041
     Dates: start: 20090917, end: 20090917
  16. LOSARTAN POTASSIUM [Concomitant]
     Route: 048
     Dates: start: 20060116
  17. GARENOXACIN MESYLATE [Concomitant]
     Route: 048
     Dates: start: 20100409, end: 20100416
  18. TOCILIZUMAB [Suspect]
     Indication: RHEUMATOID ARTHRITIS
     Dosage: FORM:INJECTION
     Route: 041
     Dates: start: 20090108, end: 20090108
  19. TOCILIZUMAB [Suspect]
     Route: 041
     Dates: start: 20090205, end: 20090205
  20. TOCILIZUMAB [Suspect]
     Route: 041
     Dates: start: 20100108, end: 20100108
  21. ALLORIN [Concomitant]
     Route: 048
  22. BISOLVON [Concomitant]
     Route: 048
     Dates: start: 20100409, end: 20100416
  23. TOCILIZUMAB [Suspect]
     Route: 041
     Dates: start: 20090430, end: 20090430
  24. TOCILIZUMAB [Suspect]
     Route: 041
     Dates: start: 20090528, end: 20090528
  25. TOCILIZUMAB [Suspect]
     Route: 041
     Dates: start: 20090625, end: 20090625
  26. TOCILIZUMAB [Suspect]
     Route: 041
     Dates: start: 20091211, end: 20091211
  27. TOCILIZUMAB [Suspect]
     Route: 041
     Dates: start: 20100812, end: 20100909
  28. SAXIZON [Concomitant]
     Route: 042
     Dates: start: 20090108, end: 20090108
  29. TOCILIZUMAB [Suspect]
     Route: 041
     Dates: start: 20090820, end: 20090820

REACTIONS (4)
  - PERIARTHRITIS [None]
  - PNEUMONIA [None]
  - NASAL SEPTUM PERFORATION [None]
  - EPISTAXIS [None]
